FAERS Safety Report 8501458-9 (Version None)
Quarter: 2012Q3

REPORT INFORMATION
  Report Type: 
  Country: None (occurrence: None)
  Receive Date: 20120710
  Receipt Date: 20120705
  Transmission Date: 20120928
  Serious: Yes (Other)
  Sender: FDA-Public Use
  Company Number: CA-JNJFOC-20120703214

PATIENT
  Age: 34 Year
  Sex: Female
  Weight: 77.11 kg

DRUGS (4)
  1. RISPERDAL [Concomitant]
     Indication: PSYCHOTIC DISORDER
     Dosage: SINCE 2 YEARS
     Route: 065
  2. UNKNOWN MEDICATION [Concomitant]
     Route: 065
  3. NICORETTE [Suspect]
     Indication: PRODUCT USED FOR UNKNOWN INDICATION
     Dosage: 12 PIECES PER DAY
     Route: 048
  4. CLOZAPINE [Concomitant]
     Indication: PSYCHOTIC DISORDER
     Dosage: SINCE 6 MONTHS
     Route: 065

REACTIONS (2)
  - NICOTINE DEPENDENCE [None]
  - INCORRECT DRUG ADMINISTRATION DURATION [None]
